FAERS Safety Report 25325786 (Version 1)
Quarter: 2025Q2

REPORT INFORMATION
  Report Type: Spontaneous
  Country: BG (occurrence: BG)
  Receive Date: 20250516
  Receipt Date: 20250516
  Transmission Date: 20250717
  Serious: Yes (Hospitalization, Other)
  Sender: ABBVIE
  Company Number: BG-ABBVIE-6282275

PATIENT
  Age: 60 Year
  Sex: Female
  Weight: 55 kg

DRUGS (3)
  1. HUMIRA [Suspect]
     Active Substance: ADALIMUMAB
     Indication: Colitis ulcerative
     Dosage: 80 MG AT WEEK 2
     Route: 058
     Dates: start: 202307, end: 202401
  2. HUMIRA [Suspect]
     Active Substance: ADALIMUMAB
     Route: 058
     Dates: start: 202207
  3. HUMIRA [Suspect]
     Active Substance: ADALIMUMAB
     Route: 058

REACTIONS (13)
  - Spontaneous haemorrhage [Unknown]
  - Mucosal hyperaemia [Unknown]
  - Oedema [Unknown]
  - Haematochezia [Unknown]
  - Asthenia [Unknown]
  - Clostridium difficile infection [Unknown]
  - Frequent bowel movements [Unknown]
  - Gastrointestinal wall thickening [Unknown]
  - Gastrointestinal ulcer [Unknown]
  - Gastrointestinal erosion [Unknown]
  - Abdominal wall oedema [Unknown]
  - Gastrointestinal disorder [Unknown]
  - Pain [Unknown]
